FAERS Safety Report 15686072 (Version 4)
Quarter: 2020Q2

REPORT INFORMATION
  Report Type: Spontaneous
  Country: US (occurrence: US)
  Receive Date: 20181204
  Receipt Date: 20200417
  Transmission Date: 20200713
  Serious: Yes (Other)
  Sender: FDA-Public Use
  Company Number: US-SA-2018SA326814

PATIENT
  Age: 59 Year
  Sex: Female
  Weight: 92.97 kg

DRUGS (10)
  1. PREVACID [Concomitant]
     Active Substance: LANSOPRAZOLE
  2. TRUVADA [Concomitant]
     Active Substance: EMTRICITABINE\TENOFOVIR DISOPROXIL FUMARATE
  3. DURAGESIC [Concomitant]
     Active Substance: FENTANYL
  4. ISENTRESS [Concomitant]
     Active Substance: RALTEGRAVIR POTASSIUM
  5. OXYMORPHONE [Concomitant]
     Active Substance: OXYMORPHONE
  6. INTELENCE [Concomitant]
     Active Substance: ETRAVIRINE
  7. CISPLATIN. [Concomitant]
     Active Substance: CISPLATIN
  8. DOCETAXEL. [Suspect]
     Active Substance: DOCETAXEL
     Indication: LIP AND/OR ORAL CAVITY CANCER
     Dosage: 160 MG AND 80 MG
     Route: 042
     Dates: start: 20121026, end: 20121026
  9. PLATINOL [Concomitant]
     Active Substance: CISPLATIN
     Dosage: UNK
     Route: 065
  10. CARISOPRODOL. [Concomitant]
     Active Substance: CARISOPRODOL

REACTIONS (1)
  - Alopecia [Recovering/Resolving]

NARRATIVE: CASE EVENT DATE: 20121207
